FAERS Safety Report 9127717 (Version 1)
Quarter: 2013Q1

REPORT INFORMATION
  Report Type: Spontaneous
  Country: US (occurrence: US)
  Receive Date: 20130228
  Receipt Date: 20130228
  Transmission Date: 20140127
  Serious: No
  Sender: FDA-Public Use
  Company Number: US-GLAXOSMITHKLINE-A0995360A

PATIENT
  Age: 42 Year
  Sex: Female

DRUGS (9)
  1. LAMICTAL [Suspect]
     Indication: BIPOLAR DISORDER
     Dosage: 400MG PER DAY
     Route: 048
     Dates: start: 201005
  2. LAMICTAL XR [Suspect]
     Indication: BIPOLAR DISORDER
     Dosage: 400MG PER DAY
     Route: 048
     Dates: start: 201009
  3. LAMOTRIGINE [Suspect]
     Indication: BIPOLAR DISORDER
     Route: 065
     Dates: start: 2010
  4. WELLBUTRIN [Concomitant]
  5. ADDERALL [Concomitant]
  6. UNSPECIFIED MEDICATION [Concomitant]
  7. AMBIEN [Concomitant]
  8. SEROQUEL [Concomitant]
  9. MUSCLE RELAXER [Concomitant]

REACTIONS (11)
  - Vision blurred [Not Recovered/Not Resolved]
  - Diplopia [Unknown]
  - Altered visual depth perception [Unknown]
  - Contusion [Unknown]
  - Intention tremor [Unknown]
  - Coordination abnormal [Unknown]
  - Somnolence [Unknown]
  - Swollen tongue [Unknown]
  - Drug ineffective [Unknown]
  - Blepharospasm [Unknown]
  - Head injury [Unknown]
